FAERS Safety Report 4713190-8 (Version None)
Quarter: 2005Q3

REPORT INFORMATION
  Report Type: 
  Country: None (occurrence: None)
  Receive Date: 20050713
  Receipt Date: 20050708
  Transmission Date: 20060218
  Serious: Yes (Death)
  Sender: FDA-Public Use
  Company Number: US-BRISTOL-MYERS SQUIBB COMPANY-13030754

PATIENT
  Sex: Male

DRUGS (4)
  1. CARBOPLATIN [Suspect]
     Dates: start: 20050620, end: 20050620
  2. ETHAMSYLATE [Concomitant]
  3. MENADIONE [Concomitant]
  4. ACETAMINOPHEN [Concomitant]

REACTIONS (1)
  - HAEMORRHAGE [None]
